FAERS Safety Report 14246849 (Version 3)
Quarter: 2018Q1

REPORT INFORMATION
  Report Type: Other
  Country: US (occurrence: US)
  Receive Date: 20171204
  Receipt Date: 20180206
  Transmission Date: 20180508
  Serious: Yes (Hospitalization, Other)
  Sender: FDA-Public Use
  Company Number: US-UNITED THERAPEUTICS-UNT-2017-016932

PATIENT
  Age: 60 Year
  Sex: Female
  Weight: 69.84 kg

DRUGS (1)
  1. ORENITRAM [Suspect]
     Active Substance: TREPROSTINIL
     Indication: PULMONARY ARTERIAL HYPERTENSION
     Dosage: 2.5 MG, TID
     Route: 048
     Dates: start: 20171020

REACTIONS (6)
  - Pneumonia [Unknown]
  - Hypotension [Unknown]
  - Palpitations [Unknown]
  - Spinal fracture [Unknown]
  - Pulmonary arterial hypertension [Unknown]
  - Bronchitis [Unknown]

NARRATIVE: CASE EVENT DATE: 20171113
